FAERS Safety Report 12643610 (Version 1)
Quarter: 2016Q3

REPORT INFORMATION
  Report Type: Spontaneous
  Country: US (occurrence: US)
  Receive Date: 20160811
  Receipt Date: 20160811
  Transmission Date: 20161109
  Serious: Yes (Other)
  Sender: FDA-Public Use
  Company Number: US-BAYER-2016-149554

PATIENT
  Sex: Female
  Weight: 64.4 kg

DRUGS (2)
  1. BAYER LOW DOSE [Suspect]
     Active Substance: ASPIRIN
     Indication: ANTICOAGULANT THERAPY
     Dosage: 1 DF, ONCE DAILY
     Route: 048
  2. PHILLIPS^ CHEWABLE TABLETS MINT [Concomitant]
     Active Substance: MAGNESIUM HYDROXIDE
     Indication: CONSTIPATION
     Dosage: 1-2 DF UNTIL 3 DF, ONCE DAILY
     Route: 048

REACTIONS (3)
  - Oesophagitis [None]
  - Off label use [None]
  - Chest pain [None]
